FAERS Safety Report 21336407 (Version 1)
Quarter: 2022Q3

REPORT INFORMATION
  Report Type: Spontaneous
  Country: ES (occurrence: ES)
  Receive Date: 20220915
  Receipt Date: 20220915
  Transmission Date: 20221026
  Serious: Yes (Other)
  Sender: FDA-Public Use
  Company Number: None

PATIENT
  Age: 86 Year
  Sex: Female

DRUGS (6)
  1. QUETIAPINE [Suspect]
     Active Substance: QUETIAPINE
     Indication: Cognitive disorder
     Dosage: FORM STRENGTH : 50 MG PROLONGED-RELEASE TABLETS EFG 10 TABLETS , UNIT DOSE : 25 MG , FREQUENCY TIME
     Dates: start: 20220707, end: 20220811
  2. NITROFIX [Concomitant]
     Indication: Product used for unknown indication
     Dosage: FORM STRENGTH : 5 MG TRANSDERMAL PATCHES EFG, 30 PATCHES , UNIT DOSE : 5 MG , FREQUENCY TIME : 1 DAY
     Dates: start: 20220208
  3. LEVOTHYROXINE SODIUM [Concomitant]
     Active Substance: LEVOTHYROXINE SODIUM
     Indication: Product used for unknown indication
     Dosage: FORM STRENGTH : 25 MICROGRAMS TABLETS, 100 TABLETS , UNIT DOSE : 25 MICROGRAM , FREQUENCY TIME : 48
     Dates: start: 20220809
  4. FUROSEMIDE UXA [Concomitant]
     Indication: Product used for unknown indication
     Dosage: FORM STRENGTH : 40 MG TABLETS EFG, 30 TABLETS , UNIT DOSE : 40 MG , FREQUENCY TIME : 1 DAY
     Dates: start: 20220503
  5. SPIRONOLACTONE [Concomitant]
     Active Substance: SPIRONOLACTONE
     Indication: Product used for unknown indication
     Dosage: ESPIRONOLACTONA (326A)
  6. ENALAPRIL [Concomitant]
     Active Substance: ENALAPRIL
     Indication: Hypertension
     Dosage: ENALAPRIL (2142A) , UNIT DOSE : 5 MG , FREQUENCY TIME : 1 DAY

REACTIONS (3)
  - Vomiting [Recovered/Resolved]
  - Diarrhoea [Recovered/Resolved]
  - Decreased appetite [Recovered/Resolved]

NARRATIVE: CASE EVENT DATE: 20220701
